FAERS Safety Report 5816676-8 (Version None)
Quarter: 2008Q3

REPORT INFORMATION
  Report Type: 
  Country: None (occurrence: None)
  Receive Date: 20080721
  Receipt Date: 20080709
  Transmission Date: 20090109
  Serious: Yes (Hospitalization)
  Sender: FDA-Public Use
  Company Number: ES-PFIZER INC-2008057608

PATIENT
  Age: 52 Year
  Sex: Female

DRUGS (5)
  1. LYRICA [Suspect]
     Indication: SYSTEMIC LUPUS ERYTHEMATOSUS
     Dosage: DAILY DOSE:75MG
     Route: 048
     Dates: start: 20080101, end: 20080430
  2. HYDROXYCHLOROQUINE SULFATE [Interacting]
     Indication: SYSTEMIC LUPUS ERYTHEMATOSUS
     Dosage: DAILY DOSE:250MG-FREQ:DAILY
     Route: 048
     Dates: start: 19930101, end: 20080430
  3. ATENOLOL [Concomitant]
     Dosage: DAILY DOSE:50MG
     Route: 048
  4. PREDNISONE TAB [Concomitant]
     Dosage: DAILY DOSE:30MG
     Route: 048
  5. METHYLDOPA [Concomitant]
     Dosage: DAILY DOSE:250MG
     Route: 048

REACTIONS (2)
  - ACUTE POLYNEUROPATHY [None]
  - DRUG INTERACTION [None]
